FAERS Safety Report 4948400-5 (Version None)
Quarter: 2006Q1

REPORT INFORMATION
  Report Type: 
  Country: None (occurrence: None)
  Receive Date: 20060201
  Receipt Date: 20051110
  Transmission Date: 20060701
  Serious: No
  Sender: FDA-Public Use
  Company Number: 2005PV004242

PATIENT
  Age: 49 Year
  Sex: Female

DRUGS (9)
  1. BYETTA [Suspect]
     Indication: DIABETES MELLITUS NON-INSULIN-DEPENDENT
     Dosage: 5 MCG; BID; SC
     Route: 058
     Dates: start: 20051004, end: 20050101
  2. ZESTRIL [Concomitant]
  3. ASPIRIN [Concomitant]
  4. NORVASC [Concomitant]
  5. ATENOLOL [Concomitant]
  6. METFORMIN [Concomitant]
  7. HYDROCHLOROTHIAZIDE [Concomitant]
  8. ACTOS [Concomitant]
  9. GLIPIZIDE [Concomitant]

REACTIONS (2)
  - CHEST PAIN [None]
  - HYPOAESTHESIA FACIAL [None]
